FAERS Safety Report 8382007-5 (Version None)
Quarter: 2012Q2

REPORT INFORMATION
  Report Type: 
  Country: None (occurrence: None)
  Receive Date: 20120522
  Receipt Date: 20120522
  Transmission Date: 20120825
  Serious: Yes (Disabling, Other)
  Sender: FDA-Public Use
  Company Number: None

PATIENT
  Sex: Male
  Weight: 77.1115 kg

DRUGS (1)
  1. FINASTERIDE [Suspect]
     Indication: ANDROGENETIC ALOPECIA
     Dosage: 1/4 OF TABLET 1 DAILY PO
     Route: 048
     Dates: start: 20040901, end: 20111115

REACTIONS (10)
  - IMPAIRED WORK ABILITY [None]
  - SUICIDAL IDEATION [None]
  - MENTAL DISORDER [None]
  - AMNESIA [None]
  - FATIGUE [None]
  - PANIC ATTACK [None]
  - ANXIETY [None]
  - DISTURBANCE IN ATTENTION [None]
  - DISTURBANCE IN SEXUAL AROUSAL [None]
  - INSOMNIA [None]
